FAERS Safety Report 16831572 (Version 2)
Quarter: 2019Q4

REPORT INFORMATION
  Report Type: Spontaneous
  Country: IT (occurrence: IT)
  Receive Date: 20190920
  Receipt Date: 20191018
  Transmission Date: 20200122
  Serious: Yes (Other)
  Sender: FDA-Public Use
  Company Number: IT-TEVA-2019-IT-1110420

PATIENT
  Age: 74 Year
  Sex: Male

DRUGS (1)
  1. TADALAFIL TEVA [Suspect]
     Active Substance: TADALAFIL

REACTIONS (3)
  - Pupillary light reflex tests abnormal [Recovered/Resolved]
  - Mydriasis [Recovered/Resolved]
  - Alcohol interaction [Unknown]
